FAERS Safety Report 9869878 (Version 1)
Quarter: 2014Q1

REPORT INFORMATION
  Report Type: Spontaneous
  Country: FR (occurrence: FR)
  Receive Date: 20140205
  Receipt Date: 20140205
  Transmission Date: 20141002
  Serious: Yes (Other)
  Sender: FDA-Public Use
  Company Number: FR-MERCK-1402FRA001189

PATIENT
  Sex: Male
  Weight: 75 kg

DRUGS (4)
  1. INVANZ [Suspect]
     Indication: URINARY TRACT INFECTION
     Dosage: UNK
     Route: 042
     Dates: start: 20140114
  2. DEPAKINE [Concomitant]
  3. EPITOMAX [Concomitant]
  4. RUFINAMIDE [Concomitant]

REACTIONS (2)
  - Epilepsy [Not Recovered/Not Resolved]
  - Dry mouth [Not Recovered/Not Resolved]
